FAERS Safety Report 10153411 (Version 1)
Quarter: 2014Q2

REPORT INFORMATION
  Report Type: Spontaneous
  Country: US (occurrence: US)
  Receive Date: 20140505
  Receipt Date: 20140505
  Transmission Date: 20141212
  Serious: No
  Sender: FDA-Public Use
  Company Number: US-ASTRAZENECA-2013SE65385

PATIENT
  Sex: Female

DRUGS (2)
  1. PRILOSEC [Suspect]
     Route: 048
     Dates: start: 2005
  2. PRILOSEC [Suspect]
     Route: 048
     Dates: start: 2005

REACTIONS (2)
  - Drug screen positive [Unknown]
  - Intentional product misuse [Unknown]
